FAERS Safety Report 11153217 (Version 1)
Quarter: 2015Q2

REPORT INFORMATION
  Report Type: Spontaneous
  Country: US (occurrence: US)
  Receive Date: 20150601
  Receipt Date: 20150601
  Transmission Date: 20150821
  Serious: Yes (Death, Hospitalization)
  Sender: FDA-Public Use
  Company Number: PHHY2015US064285

PATIENT
  Age: 59 Year
  Sex: Male

DRUGS (1)
  1. EVEROLIMUS [Suspect]
     Active Substance: EVEROLIMUS
     Indication: PANCREATIC NEUROENDOCRINE TUMOUR
     Dosage: 10 MG, QD
     Route: 065
     Dates: start: 20090501, end: 20091230

REACTIONS (12)
  - Cholangitis acute [Recovered/Resolved]
  - Gastrooesophageal reflux disease [Unknown]
  - Weight decreased [Unknown]
  - Pruritus [Unknown]
  - Abdominal pain upper [Unknown]
  - Hyperglycaemia [Unknown]
  - Dermatitis [Unknown]
  - Acute kidney injury [Fatal]
  - Stomatitis [Unknown]
  - Malignant neoplasm progression [Fatal]
  - Device occlusion [Recovered/Resolved]
  - Decreased appetite [Unknown]
